FAERS Safety Report 4325963-4 (Version None)
Quarter: 2004Q1

REPORT INFORMATION
  Report Type: 
  Country: None (occurrence: None)
  Receive Date: 20040329
  Receipt Date: 20040322
  Transmission Date: 20041129
  Serious: Yes (Hospitalization)
  Sender: FDA-Public Use
  Company Number: US-GLAXOSMITHKLINE-A0504026A

PATIENT
  Sex: Female

DRUGS (15)
  1. AVANDIA [Suspect]
  2. ASPIRIN [Concomitant]
  3. LIPITOR [Concomitant]
  4. LOPRESSOR [Concomitant]
  5. IMDUR [Concomitant]
  6. GLUCOTROL [Concomitant]
  7. LASIX [Concomitant]
  8. ZAROXOLYN [Concomitant]
  9. COUMADIN [Concomitant]
  10. ZANTAC [Concomitant]
  11. REGLAN [Concomitant]
  12. NOVOLIN N [Concomitant]
  13. PHENERGAN [Concomitant]
  14. POTASSIUM SUPPLEMENT [Concomitant]
  15. LEVAQUIN [Concomitant]

REACTIONS (15)
  - ACUTE MYOCARDIAL INFARCTION [None]
  - ANAEMIA [None]
  - BRADYCARDIA [None]
  - CARDIAC DISORDER [None]
  - CARDIAC FAILURE CONGESTIVE [None]
  - CARDIAC MURMUR [None]
  - DIABETES MELLITUS INADEQUATE CONTROL [None]
  - HYPERKALAEMIA [None]
  - OEDEMA PERIPHERAL [None]
  - PLATELET COUNT DECREASED [None]
  - PLEURAL EFFUSION [None]
  - RENAL FAILURE [None]
  - SUPRAVENTRICULAR EXTRASYSTOLES [None]
  - VENTRICULAR DYSFUNCTION [None]
  - WEIGHT INCREASED [None]
